FAERS Safety Report 4585727-3 (Version None)
Quarter: 2005Q1

REPORT INFORMATION
  Report Type: 
  Country: None (occurrence: None)
  Receive Date: 20050209
  Receipt Date: 20050128
  Transmission Date: 20050727
  Serious: Yes (Hospitalization)
  Sender: FDA-Public Use
  Company Number: 2004-03227

PATIENT
  Age: 61 Year
  Sex: Male

DRUGS (3)
  1. IMMUCYST (BCG-IT (CONNAUGHT)), AVENTIS PASTEUR PASTEUR LTD. [Suspect]
     Indication: BLADDER CANCER
     Dosage: 81.0 MG
     Route: 043
     Dates: start: 20040910
  2. TOSUFLOXACIN TOSILATE [Concomitant]
  3. BENEXATE HYDROCHLORIDE BETADEX [Concomitant]

REACTIONS (6)
  - ANAEMIA [None]
  - BLADDER TAMPONADE [None]
  - HAEMATURIA [None]
  - POLLAKIURIA [None]
  - URINARY BLADDER HAEMORRHAGE [None]
  - URINARY RETENTION [None]
